FAERS Safety Report 24378850 (Version 1)
Quarter: 2024Q3

REPORT INFORMATION
  Report Type: Report from Study
  Country: CN (occurrence: CN)
  Receive Date: 20240930
  Receipt Date: 20240930
  Transmission Date: 20241017
  Serious: Yes (Death, Other)
  Sender: SANOFI AVENTIS
  Company Number: CN-SA-2024SA277267

PATIENT

DRUGS (3)
  1. OXALIPLATIN [Suspect]
     Active Substance: OXALIPLATIN
     Indication: Rectal adenocarcinoma
     Dosage: 130 MG/M2, Q3W  (OVER 2 HOUR) ON DAY 1 OF CYCLE
     Route: 041
  2. CAPECITABINE [Suspect]
     Active Substance: CAPECITABINE
     Indication: Rectal adenocarcinoma
     Dosage: 1000 MG/M2, BID (DAY 1-14 IN EVERY 3-WEEK CYCLE)
     Route: 048
  3. CAMRELIZUMAB [Concomitant]
     Active Substance: CAMRELIZUMAB
     Indication: Rectal adenocarcinoma
     Dosage: 200 MG/M2, Q3W
     Route: 041

REACTIONS (1)
  - Septic shock [Fatal]
